FAERS Safety Report 12094482 (Version 1)
Quarter: 2016Q1

REPORT INFORMATION
  Report Type: Spontaneous
  Country: US (occurrence: US)
  Receive Date: 20160219
  Receipt Date: 20160219
  Transmission Date: 20160526
  Serious: Yes (Other)
  Sender: FDA-Public Use
  Company Number: US-PFIZER INC-2016098659

PATIENT
  Age: 36 Year
  Sex: Male

DRUGS (7)
  1. GABAPENTIN. [Suspect]
     Active Substance: GABAPENTIN
     Indication: SLEEP DISORDER
     Dosage: 300MG CAPSULE THREE PILLS AT NIGHT
     Dates: start: 201310, end: 201311
  2. LOXAPINE. [Concomitant]
     Active Substance: LOXAPINE
     Indication: MENTAL DISORDER
     Dosage: 10 MG TO 350 MG, DAILY
     Dates: start: 201209
  3. VALPROATE SEMISODIUM [Concomitant]
     Active Substance: DIVALPROEX SODIUM
     Indication: AFFECTIVE DISORDER
     Dosage: 250 MG, 3X/DAY
     Dates: start: 201310
  4. TRILEPTAL [Concomitant]
     Active Substance: OXCARBAZEPINE
     Indication: AFFECTIVE DISORDER
     Dosage: 150 MG, 2X/DAY
     Dates: start: 200607
  5. TRILEPTAL [Concomitant]
     Active Substance: OXCARBAZEPINE
     Dosage: 300 MG, 2X/DAY  (LIQUID FORMULATION)
  6. VALPROATE SEMISODIUM [Concomitant]
     Active Substance: DIVALPROEX SODIUM
     Dosage: 500 MG, 2X/DAY
     Dates: end: 201403
  7. FANAPT [Concomitant]
     Active Substance: ILOPERIDONE
     Dosage: UNK
     Dates: start: 201310, end: 201312

REACTIONS (3)
  - Mania [Recovered/Resolved]
  - Product use issue [Unknown]
  - Mental impairment [Recovered/Resolved]

NARRATIVE: CASE EVENT DATE: 201310
